FAERS Safety Report 8164317-X (Version None)
Quarter: 2012Q1

REPORT INFORMATION
  Report Type: 
  Country: None (occurrence: None)
  Receive Date: 20120224
  Receipt Date: 20120220
  Transmission Date: 20120608
  Serious: Yes (Death, Hospitalization)
  Sender: FDA-Public Use
  Company Number: FR-AMGEN-FRANI2012011143

PATIENT
  Age: 83 Year
  Sex: Male

DRUGS (7)
  1. METHYLPREDNISOLONE [Concomitant]
     Dosage: 80 NG, QD
     Route: 042
     Dates: start: 20111222, end: 20120108
  2. CYCLOPHOSPHAMIDE [Concomitant]
     Dosage: UNK
     Dates: start: 20111226
  3. ROMIPLOSTIM [Suspect]
     Indication: THROMBOCYTOPENIA
     Dosage: 375 UNK, UNK
     Route: 058
     Dates: start: 20120106, end: 20120106
  4. RITUXIMAB [Concomitant]
     Dosage: UNK
     Dates: start: 20111226
  5. CORTICOSTEROIDS [Concomitant]
  6. IMMUNE GLOBULIN NOS [Concomitant]
     Dosage: UNK
     Dates: start: 20111226
  7. DEXAMETHASONE [Concomitant]
     Dosage: UNK
     Dates: start: 20111226

REACTIONS (1)
  - GASTROINTESTINAL HAEMORRHAGE [None]
